FAERS Safety Report 16003891 (Version 2)
Quarter: 2019Q1

REPORT INFORMATION
  Report Type: Report from Study
  Country: US (occurrence: US)
  Receive Date: 20190226
  Receipt Date: 20190322
  Transmission Date: 20190418
  Serious: Yes (Other)
  Sender: FDA-Public Use
  Company Number: US-HORIZON-KRY-0085-2019

PATIENT
  Age: 43 Year
  Sex: Male

DRUGS (1)
  1. KRYSTEXXA [Suspect]
     Active Substance: PEGLOTICASE
     Indication: GOUT
     Dosage: EVERY 2 WEEKS
     Route: 041
     Dates: start: 20190122, end: 20190219

REACTIONS (3)
  - Tinnitus [Recovered/Resolved]
  - Urticaria [Recovered/Resolved]
  - Drug effect decreased [Not Recovered/Not Resolved]

NARRATIVE: CASE EVENT DATE: 20190218
